FAERS Safety Report 11567815 (Version 1)
Quarter: 2015Q3

REPORT INFORMATION
  Report Type: Spontaneous
  Country: BR (occurrence: BR)
  Receive Date: 20150929
  Receipt Date: 20150929
  Transmission Date: 20151125
  Serious: Yes (Death, Other)
  Sender: FDA-Public Use
  Company Number: BR-ROCHE-1630589

PATIENT
  Age: 22 Year
  Sex: Male

DRUGS (1)
  1. ACTEMRA [Suspect]
     Active Substance: TOCILIZUMAB
     Indication: STILL^S DISEASE ADULT ONSET
     Dosage: FORM STRENGTH: 200MG/10ML
     Route: 065

REACTIONS (4)
  - Sepsis [Unknown]
  - Death [Fatal]
  - Septic shock [Unknown]
  - Multi-organ failure [Unknown]
